FAERS Safety Report 22112641 (Version 1)
Quarter: 2023Q1

REPORT INFORMATION
  Report Type: Spontaneous
  Country: US (occurrence: None)
  Receive Date: 20230319
  Receipt Date: 20230319
  Transmission Date: 20230418
  Serious: No
  Sender: FDA-Public Use
  Company Number: 2023A046957

PATIENT
  Age: 33 Year
  Sex: Male

DRUGS (1)
  1. FARXIGA [Suspect]
     Active Substance: DAPAGLIFLOZIN PROPANEDIOL
     Indication: Glycosylated haemoglobin
     Route: 048
     Dates: start: 202301, end: 202302

REACTIONS (1)
  - Furuncle [Recovered/Resolved]

NARRATIVE: CASE EVENT DATE: 20230101
